FAERS Safety Report 9603105 (Version 2)
Quarter: 2013Q4

REPORT INFORMATION
  Report Type: Spontaneous
  Country: JP (occurrence: JP)
  Receive Date: 20131007
  Receipt Date: 20131028
  Transmission Date: 20140711
  Serious: Yes (Other)
  Sender: FDA-Public Use
  Company Number: JP-GLAXOSMITHKLINE-B0927592A

PATIENT
  Age: 40 Year
  Sex: Male

DRUGS (4)
  1. SERETIDE (50MCG/250MCG) [Suspect]
     Indication: ASTHMA
     Dosage: 250MCG TWICE PER DAY
     Route: 055
     Dates: start: 20120926, end: 20130625
  2. PREZISTA NAIVE [Suspect]
     Indication: HIV INFECTION
     Dosage: 800MG PER DAY
     Route: 048
     Dates: start: 20120508, end: 20121128
  3. RITONAVIR [Suspect]
     Indication: HIV INFECTION
     Dosage: 100MG PER DAY
     Route: 048
     Dates: start: 20120508, end: 20121128
  4. ISENTRESS [Concomitant]
     Indication: HIV INFECTION
     Dosage: 400MG TWICE PER DAY
     Route: 048
     Dates: start: 20121129

REACTIONS (8)
  - Cushing^s syndrome [Recovered/Resolved]
  - Central obesity [Recovered/Resolved]
  - Increased appetite [Recovered/Resolved]
  - Muscular weakness [Recovered/Resolved]
  - Obesity [Unknown]
  - Weight increased [Unknown]
  - Diabetes mellitus [Unknown]
  - Drug interaction [Unknown]
